FAERS Safety Report 4360774-5 (Version None)
Quarter: 2004Q2

REPORT INFORMATION
  Report Type: 
  Country: None (occurrence: None)
  Receive Date: 20040519
  Receipt Date: 20040519
  Transmission Date: 20050107
  Serious: Yes (Other)
  Sender: FDA-Public Use
  Company Number: None

PATIENT
  Age: 11 Year
  Sex: Male
  Weight: 15 kg

DRUGS (13)
  1. CYCLOSPORINE [Suspect]
     Indication: IMMUNOSUPPRESSANT DRUG THERAPY
     Dosage: 60 MG IV QD (INFUSED OVER 2 HRS)
     Route: 042
     Dates: start: 20040326, end: 20040328
  2. TPN [Concomitant]
  3. IMMUNE GLOBULIN INTRAVENOUS (HUMAN) [Concomitant]
  4. INSULIN LENTE [Concomitant]
  5. VANCO [Concomitant]
  6. VORICONAZOLE [Concomitant]
  7. CIPRO [Concomitant]
  8. AZITHROMYCIN [Concomitant]
  9. PREDNISONE [Concomitant]
  10. LIDOBENALOX [Concomitant]
  11. BENADRYL [Concomitant]
  12. APAP TAB [Concomitant]
  13. SLIDING SCALE INSULIN [Concomitant]

REACTIONS (4)
  - ERYTHEMA [None]
  - INFUSION RELATED REACTION [None]
  - PRURITUS [None]
  - RASH [None]
